FAERS Safety Report 8093718-3 (Version None)
Quarter: 2012Q1

REPORT INFORMATION
  Report Type: 
  Country: None (occurrence: None)
  Receive Date: 20120129
  Receipt Date: 20111018
  Transmission Date: 20120608
  Serious: No
  Sender: FDA-Public Use
  Company Number: US-ABBOTT-11P-163-0865845-00

PATIENT
  Age: 25 Year
  Sex: Male

DRUGS (1)
  1. HUMIRA [Suspect]
     Indication: CROHN'S DISEASE
     Dates: start: 20050101

REACTIONS (6)
  - CROHN'S DISEASE [None]
  - MALAISE [None]
  - EXPIRED DRUG ADMINISTERED [None]
  - PAIN [None]
  - FEELING ABNORMAL [None]
  - VOMITING [None]
